FAERS Safety Report 9093778 (Version 1)
Quarter: 2013Q1

REPORT INFORMATION
  Report Type: Report from Study
  Country: US (occurrence: US)
  Receive Date: 20130131
  Receipt Date: 20130131
  Transmission Date: 20140127
  Serious: No
  Sender: FDA-Public Use
  Company Number: US-ABBOTT-12P-163-1010109-00

PATIENT
  Age: 56 Year
  Sex: Female

DRUGS (12)
  1. HUMIRA [Suspect]
     Indication: ANKYLOSING SPONDYLITIS
     Dosage: EVERY 15 DAYS
     Dates: start: 201205
  2. PREDNISONE [Concomitant]
     Indication: PRODUCT USED FOR UNKNOWN INDICATION
     Dosage: 20 MG DAILY
  3. PREDNISONE [Concomitant]
     Dosage: WEANED
  4. PREDNISONE [Concomitant]
     Dosage: 2.5 MG DAILY
  5. PREDNISONE [Concomitant]
     Dosage: 5 MG DAILY
     Dates: start: 201211
  6. STEROID [Concomitant]
     Indication: INFLAMMATION
     Dates: start: 201205
  7. STEROID [Concomitant]
  8. MELOXICAM [Concomitant]
     Indication: PAIN
  9. UNKNOWN PAIN KILLERS [Concomitant]
     Indication: PRODUCT USED FOR UNKNOWN INDICATION
  10. THYROXINE [Concomitant]
     Indication: PRODUCT USED FOR UNKNOWN INDICATION
     Dosage: 75 MCG DAILY
  11. DEXILANT [Concomitant]
     Indication: ABDOMINAL PAIN UPPER
  12. BENICAR [Concomitant]
     Indication: HYPERTENSION
     Dosage: EVERY ONE TO THREE DAYS AS NEEDED

REACTIONS (1)
  - Inflammation [Not Recovered/Not Resolved]
